FAERS Safety Report 18648606 (Version 1)
Quarter: 2020Q4

REPORT INFORMATION
  Report Type: Spontaneous
  Country: US (occurrence: US)
  Receive Date: 20201221
  Receipt Date: 20201221
  Transmission Date: 20210114
  Serious: Yes (Hospitalization)
  Sender: FDA-Public Use
  Company Number: None

PATIENT
  Age: 54 Year
  Sex: Male
  Weight: 86 kg

DRUGS (1)
  1. HYDROXYZINE (HYDROXYZINE HCL 50MG TAB) [Suspect]
     Active Substance: HYDROXYZINE HYDROCHLORIDE
     Indication: INSOMNIA
     Dosage: ?          OTHER DOSE:50/100 MG;?
     Route: 048
     Dates: start: 19980831

REACTIONS (2)
  - Skin laceration [None]
  - Intentional self-injury [None]

NARRATIVE: CASE EVENT DATE: 20201204
